FAERS Safety Report 22820772 (Version 6)
Quarter: 2024Q1

REPORT INFORMATION
  Report Type: Report from Study
  Country: US (occurrence: US)
  Receive Date: 20230814
  Receipt Date: 20240311
  Transmission Date: 20240409
  Serious: Yes (Other)
  Sender: FDA-Public Use
  Company Number: US-TAKEDA-2023TUS035207

PATIENT
  Age: 72 Year
  Sex: Female

DRUGS (139)
  1. TEDUGLUTIDE [Suspect]
     Active Substance: TEDUGLUTIDE
     Indication: Short-bowel syndrome
     Dosage: 2.91 MILLIGRAM, QD
     Route: 042
     Dates: start: 20180216, end: 20190110
  2. TEDUGLUTIDE [Suspect]
     Active Substance: TEDUGLUTIDE
     Indication: Short-bowel syndrome
     Dosage: 2.91 MILLIGRAM, QD
     Route: 042
     Dates: start: 20180216, end: 20190110
  3. TEDUGLUTIDE [Suspect]
     Active Substance: TEDUGLUTIDE
     Indication: Short-bowel syndrome
     Dosage: 2.91 MILLIGRAM, QD
     Route: 042
     Dates: start: 20180216, end: 20190110
  4. TEDUGLUTIDE [Suspect]
     Active Substance: TEDUGLUTIDE
     Indication: Short-bowel syndrome
     Dosage: 2.91 MILLIGRAM, QD
     Route: 042
     Dates: start: 20180216, end: 20190110
  5. DOXYCYCLINE [Concomitant]
     Active Substance: DOXYCYCLINE
     Indication: Breast swelling
     Dosage: 100 MILLIGRAM, Q12H
     Route: 048
     Dates: start: 20220927, end: 20221004
  6. DOXYCYCLINE [Concomitant]
     Active Substance: DOXYCYCLINE
     Dosage: UNK, BID
     Route: 048
     Dates: start: 20230302, end: 20230306
  7. OCTREOTIDE [Concomitant]
     Active Substance: OCTREOTIDE\OCTREOTIDE ACETATE
     Indication: Diarrhoea
     Dosage: 50 MICROGRAM, TID
     Route: 058
     Dates: start: 20220601, end: 20230422
  8. VITAMIN D2 [Concomitant]
     Active Substance: ERGOCALCIFEROL
     Indication: Vitamin D deficiency
     Dosage: 1.25 MILLIGRAM, 1/WEEK
     Route: 048
     Dates: start: 20210610, end: 20230422
  9. VITAMIN D2 [Concomitant]
     Active Substance: ERGOCALCIFEROL
     Dosage: UNK
     Route: 048
     Dates: start: 20230414, end: 20230422
  10. NICODERM CQ [Concomitant]
     Active Substance: NICOTINE
     Indication: Tobacco abuse
     Dosage: 7 MILLIGRAM, QD
     Route: 062
     Dates: start: 20211026, end: 20211111
  11. DEXTROSE [Concomitant]
     Active Substance: DEXTROSE\DEXTROSE MONOHYDRATE
     Dosage: 25 GRAM
     Route: 042
     Dates: start: 20230414, end: 20230422
  12. TYLENOL [Concomitant]
     Active Substance: ACETAMINOPHEN
     Dosage: 650 MILLIGRAM
     Route: 048
     Dates: start: 20230414, end: 20230422
  13. TYLENOL [Concomitant]
     Active Substance: ACETAMINOPHEN
     Dosage: 650 MILLIGRAM
     Route: 048
     Dates: start: 20230210, end: 20230210
  14. TYLENOL [Concomitant]
     Active Substance: ACETAMINOPHEN
     Dosage: 650 MILLIGRAM
     Route: 048
     Dates: start: 20230405, end: 20230405
  15. MELATONIN [Concomitant]
     Active Substance: MELATONIN
     Dosage: UNK
     Route: 048
     Dates: start: 20230414
  16. MELATONIN [Concomitant]
     Active Substance: MELATONIN
     Dosage: 6 MILLIGRAM, QD
     Dates: start: 20230210, end: 20230306
  17. MELATONIN [Concomitant]
     Active Substance: MELATONIN
     Dosage: 6 MILLIGRAM
     Route: 048
     Dates: start: 20230414, end: 20230422
  18. DILAUDID [Concomitant]
     Active Substance: HYDROMORPHONE HYDROCHLORIDE
     Dosage: 0.5 MILLIGRAM
     Route: 042
     Dates: start: 20230404, end: 20230404
  19. DILAUDID [Concomitant]
     Active Substance: HYDROMORPHONE HYDROCHLORIDE
     Dosage: 2 MILLIGRAM
     Route: 048
     Dates: start: 20230418, end: 20230422
  20. MIDAZOLAM HYDROCHLORIDE [Concomitant]
     Active Substance: MIDAZOLAM HYDROCHLORIDE
     Indication: Pyrexia
     Dosage: 0.5 MILLIGRAM
     Route: 042
     Dates: start: 20230214, end: 20230214
  21. MIDAZOLAM HYDROCHLORIDE [Concomitant]
     Active Substance: MIDAZOLAM HYDROCHLORIDE
     Indication: Bacillus bacteraemia
     Dosage: 1 MILLIGRAM
     Route: 042
     Dates: start: 20230224, end: 20230224
  22. MIDAZOLAM HYDROCHLORIDE [Concomitant]
     Active Substance: MIDAZOLAM HYDROCHLORIDE
     Indication: Abdominal pain
     Dosage: 1 MILLIGRAM
     Route: 042
     Dates: start: 20230306, end: 20230306
  23. MIDAZOLAM HYDROCHLORIDE [Concomitant]
     Active Substance: MIDAZOLAM HYDROCHLORIDE
     Dosage: 10 MILLIGRAM
     Route: 042
     Dates: start: 20230411, end: 20230411
  24. FENTANYL [Concomitant]
     Active Substance: FENTANYL\FENTANYL CITRATE
     Indication: Abdominal pain
     Dosage: 300 MICROGRAM
     Route: 042
     Dates: start: 20230411, end: 20230411
  25. BUTRANS [Concomitant]
     Active Substance: BUPRENORPHINE
     Indication: Abdominal pain
     Dosage: 1 DOSAGE FORM, 1/WEEK
     Route: 062
     Dates: start: 20230410, end: 20230412
  26. BUTRANS [Concomitant]
     Active Substance: BUPRENORPHINE
     Dosage: 1 DOSAGE FORM
     Route: 062
     Dates: start: 20230417, end: 20230422
  27. MORPHINE [Concomitant]
     Active Substance: MORPHINE
     Indication: Abdominal pain
     Dosage: 22.5 MILLIGRAM, Q4HR
     Route: 048
     Dates: start: 20230408, end: 20230410
  28. ALBUTEROL [Concomitant]
     Active Substance: ALBUTEROL
     Indication: Chronic obstructive pulmonary disease
     Dosage: 90 MICROGRAM
     Route: 055
     Dates: start: 20151116, end: 20180816
  29. CEFTRIAXONE [Concomitant]
     Active Substance: CEFTRIAXONE\CEFTRIAXONE SODIUM
     Indication: Device related infection
     Dosage: 400 MILLILITER, QD
     Route: 042
     Dates: start: 20180323
  30. CYANOCOBALAMIN [Concomitant]
     Active Substance: CYANOCOBALAMIN
     Indication: Vitamin B12 deficiency
     Dosage: 6 MILLILITER
     Route: 030
     Dates: start: 20170306, end: 20230422
  31. SODIUM HYPOCHLORITE [Concomitant]
     Active Substance: SODIUM HYPOCHLORITE
     Indication: Abdominal abscess
     Dosage: UNK
     Route: 061
     Dates: start: 20170502
  32. LOPERAMIDE [Concomitant]
     Active Substance: LOPERAMIDE
     Indication: Diarrhoea
     Dosage: 2 MILLIGRAM
     Route: 048
     Dates: start: 20170818, end: 20230422
  33. LOPERAMIDE [Concomitant]
     Active Substance: LOPERAMIDE
     Dosage: 4 MILLIGRAM, QID
     Route: 048
     Dates: start: 20230210, end: 20230306
  34. MAGNESIUM LACTATE [Concomitant]
     Active Substance: MAGNESIUM LACTATE
     Indication: Magnesium deficiency
     Dosage: 84 MILLIGRAM
     Route: 048
     Dates: start: 20180103, end: 20230422
  35. PANTOPRAZOLE [Concomitant]
     Active Substance: PANTOPRAZOLE
     Indication: Gastrooesophageal reflux disease
     Dosage: 40 MILLIGRAM, QD
     Route: 048
     Dates: start: 20180124, end: 20230422
  36. VANCOMYCIN [Concomitant]
     Active Substance: VANCOMYCIN
     Indication: Device related infection
     Dosage: 800 MILLILITER
     Route: 042
     Dates: start: 20180322
  37. VANCOMYCIN [Concomitant]
     Active Substance: VANCOMYCIN
     Indication: Sepsis
     Dosage: 1250 MILLIGRAM
     Route: 042
     Dates: start: 20190711, end: 20190713
  38. VANCOMYCIN [Concomitant]
     Active Substance: VANCOMYCIN
     Dosage: 25 MILLIGRAM
     Route: 042
     Dates: start: 20230210, end: 20230210
  39. VANCOMYCIN [Concomitant]
     Active Substance: VANCOMYCIN
     Dosage: 750 MILLIGRAM, QOD
     Route: 042
  40. VITAMIN D3 [Concomitant]
     Active Substance: CHOLECALCIFEROL
     Indication: Vitamin D deficiency
     Dosage: 1000 INTERNATIONAL UNIT, QD
     Route: 048
     Dates: start: 20180216, end: 20190716
  41. VITAMIN D3 [Concomitant]
     Active Substance: CHOLECALCIFEROL
     Dosage: UNK
     Route: 048
     Dates: start: 20210610, end: 20230422
  42. SODIUM CHLORIDE [Concomitant]
     Active Substance: SODIUM CHLORIDE
     Indication: Short-bowel syndrome
     Dosage: 4000 MILLILITER
     Route: 042
     Dates: start: 20180322, end: 20190114
  43. VASOPRESSIN [Concomitant]
     Active Substance: VASOPRESSIN
     Indication: Hypotension
     Dosage: 40 INTERNATIONAL UNIT
     Route: 042
     Dates: start: 20190711, end: 20190712
  44. NOREPINEPHRINE [Concomitant]
     Active Substance: NOREPINEPHRINE\NOREPINEPHRINE BITARTRATE
     Indication: Hypotension
     Dosage: 4 MILLIGRAM
     Route: 042
     Dates: start: 20190711, end: 20190713
  45. PIPERACILLINTAZOBACTAM ORPHA [Concomitant]
     Indication: Sepsis
     Dosage: 4.5 GRAM, TID
     Route: 042
     Dates: start: 20190711, end: 20190714
  46. OXYCODONE [Concomitant]
     Active Substance: OXYCODONE\OXYCODONE HYDROCHLORIDE
     Indication: Abdominal pain
     Dosage: 5 MILLIGRAM
     Route: 048
     Dates: start: 20190712, end: 20190718
  47. OXYCODONE [Concomitant]
     Active Substance: OXYCODONE\OXYCODONE HYDROCHLORIDE
     Dosage: 10 MILLIGRAM
     Route: 048
     Dates: start: 20230412, end: 20230422
  48. OXYCODONE [Concomitant]
     Active Substance: OXYCODONE\OXYCODONE HYDROCHLORIDE
     Dosage: 10 MILLIGRAM
     Route: 048
     Dates: start: 20230404, end: 20230405
  49. BENADRYL [Concomitant]
     Active Substance: DIPHENHYDRAMINE HYDROCHLORIDE
     Indication: Dermatitis contact
     Dosage: UNK
     Route: 065
     Dates: start: 20190715, end: 20190715
  50. EUCERIN UREA [Concomitant]
     Indication: Dermatitis contact
     Dosage: UNK
     Route: 062
     Dates: start: 20190715, end: 20190715
  51. REMERON [Concomitant]
     Active Substance: MIRTAZAPINE
     Indication: Antidepressant therapy
     Dosage: 15 MILLIGRAM, QD
     Route: 048
     Dates: start: 20220209, end: 20220617
  52. ATROPINE\DIPHENOXYLATE [Concomitant]
     Active Substance: ATROPINE\DIPHENOXYLATE
     Indication: Diarrhoea
     Dosage: 2.5 MILLIGRAM, QID
     Route: 048
     Dates: start: 20220121, end: 20220326
  53. ATROPINE\DIPHENOXYLATE [Concomitant]
     Active Substance: ATROPINE\DIPHENOXYLATE
     Dosage: UNK
     Route: 048
     Dates: start: 20230308, end: 20230422
  54. CALCITRIOL [Concomitant]
     Active Substance: CALCITRIOL
     Indication: Vitamin D deficiency
     Dosage: 0.25 MICROGRAM, QD
     Route: 048
     Dates: start: 20210426, end: 20230422
  55. CALCIUM CITRATE [Concomitant]
     Active Substance: CALCIUM CITRATE
     Indication: Calcium deficiency
     Dosage: 30 MILLILITER, BID
     Route: 048
     Dates: start: 20220121, end: 20230213
  56. NICOTINE [Concomitant]
     Active Substance: NICOTINE
     Indication: Tobacco abuse
     Dosage: 4 MILLIGRAM
     Route: 048
     Dates: start: 20200714, end: 20230422
  57. NICOTINE [Concomitant]
     Active Substance: NICOTINE
     Dosage: UNK, QD
     Route: 062
     Dates: start: 20230210, end: 20230306
  58. NICOTINE [Concomitant]
     Active Substance: NICOTINE
     Dosage: UNK, QD
     Route: 062
     Dates: start: 20230414, end: 20230422
  59. FLUTICASONE PROPIONATE\SALMETEROL XINAFOATE [Concomitant]
     Active Substance: FLUTICASONE PROPIONATE\SALMETEROL XINAFOATE
     Indication: Cough
     Dosage: UNK UNK, BID
     Route: 055
     Dates: start: 20221117, end: 20230318
  60. MAXIPIME [Concomitant]
     Active Substance: CEFEPIME HYDROCHLORIDE
     Dosage: 2 GRAM, TID
     Route: 042
     Dates: start: 20230210, end: 20230210
  61. DUONEB [Concomitant]
     Active Substance: ALBUTEROL SULFATE\IPRATROPIUM BROMIDE
     Dosage: 3 MILLILITER, QID
     Route: 055
     Dates: start: 20230210, end: 20230306
  62. DUONEB [Concomitant]
     Active Substance: ALBUTEROL SULFATE\IPRATROPIUM BROMIDE
     Dosage: 3 MILLILITER
     Route: 055
     Dates: start: 20230404, end: 20230412
  63. DULERA [Concomitant]
     Active Substance: FORMOTEROL FUMARATE DIHYDRATE\MOMETASONE FUROATE
     Dosage: UNK UNK, BID
     Route: 055
     Dates: start: 20230210, end: 20230306
  64. DULERA [Concomitant]
     Active Substance: FORMOTEROL FUMARATE DIHYDRATE\MOMETASONE FUROATE
     Dosage: UNK UNK, BID
     Route: 055
     Dates: start: 20230404, end: 20230412
  65. DULERA [Concomitant]
     Active Substance: FORMOTEROL FUMARATE DIHYDRATE\MOMETASONE FUROATE
     Dosage: UNK UNK, BID
     Route: 055
     Dates: start: 20230414, end: 20230422
  66. PROTONIX [Concomitant]
     Active Substance: PANTOPRAZOLE SODIUM
     Indication: Pyrexia
     Dosage: 40 MILLIGRAM, QD
     Route: 048
     Dates: start: 20230210, end: 20230306
  67. PROTONIX [Concomitant]
     Active Substance: PANTOPRAZOLE SODIUM
     Indication: Bacillus bacteraemia
     Dosage: 40 MILLIGRAM, QD
     Route: 048
     Dates: start: 20230414, end: 20230422
  68. ROCALTROL [Concomitant]
     Active Substance: CALCITRIOL
     Indication: Pyrexia
     Dosage: 0.25 MICROGRAM, QD
     Route: 048
     Dates: start: 20230210, end: 20230306
  69. ROCALTROL [Concomitant]
     Active Substance: CALCITRIOL
     Indication: Bacillus bacteraemia
     Dosage: 0.25 MICROGRAM, QD
     Route: 048
     Dates: start: 20230414, end: 20230422
  70. ROBITUSSIN (GUAIFENESIN) [Concomitant]
     Active Substance: GUAIFENESIN
     Indication: Pyrexia
     Dosage: 400 MILLIGRAM, QID
     Route: 048
     Dates: start: 20230210, end: 20230306
  71. ROBITUSSIN (GUAIFENESIN) [Concomitant]
     Active Substance: GUAIFENESIN
     Indication: Bacillus bacteraemia
     Dosage: 400 MILLIGRAM
     Route: 048
     Dates: start: 20230414, end: 20230422
  72. ROBITUSSIN (GUAIFENESIN) [Concomitant]
     Active Substance: GUAIFENESIN
     Indication: Abdominal pain
     Dosage: 400 MILLIGRAM
     Route: 048
     Dates: start: 20230405, end: 20230412
  73. MIRALAX [Concomitant]
     Active Substance: POLYETHYLENE GLYCOL 3350
     Dosage: 17 GRAM, QD
     Route: 048
     Dates: start: 20230210, end: 20230306
  74. MIRALAX [Concomitant]
     Active Substance: POLYETHYLENE GLYCOL 3350
     Dosage: 17 GRAM, QD
     Route: 048
     Dates: start: 20230405, end: 20230412
  75. ZOFRAN [Concomitant]
     Active Substance: ONDANSETRON HYDROCHLORIDE
     Indication: Abdominal pain
     Dosage: 4 MILLIGRAM, QID
     Route: 048
     Dates: start: 20230210, end: 20230306
  76. ZOFRAN [Concomitant]
     Active Substance: ONDANSETRON HYDROCHLORIDE
     Dosage: 4 MILLIGRAM, SINGLE
     Route: 042
     Dates: start: 20230404, end: 20230404
  77. HEPARIN [Concomitant]
     Active Substance: HEPARIN SODIUM
     Indication: Pyrexia
     Dosage: 5000 INTERNATIONAL UNIT, BID
     Route: 058
     Dates: start: 20230210, end: 20230306
  78. HEPARIN [Concomitant]
     Active Substance: HEPARIN SODIUM
     Indication: Bacillus bacteraemia
     Dosage: 5 MILLILITER
     Route: 042
     Dates: start: 20230306, end: 20230306
  79. SPIRIVA RESPIMAT [Concomitant]
     Active Substance: TIOTROPIUM BROMIDE
     Dosage: UNK UNK, QD
     Route: 055
     Dates: start: 20230211, end: 20230306
  80. BIOTENE NOS [Concomitant]
     Active Substance: CETYLPYRIDINIUM CHLORIDE OR SODIUM FLUORIDE OR SODIUM MONOFLUOROPHOSPHATE OR GLUCOSE OXIDASE\LACTOFE
     Dosage: UNK
     Route: 048
     Dates: start: 20230211, end: 20230306
  81. BIOTENE NOS [Concomitant]
     Active Substance: CETYLPYRIDINIUM CHLORIDE OR SODIUM FLUORIDE OR SODIUM MONOFLUOROPHOSPHATE OR GLUCOSE OXIDASE\LACTOFE
     Dosage: UNK
     Route: 048
     Dates: start: 20230407, end: 20230407
  82. K-DUR [Concomitant]
     Active Substance: POTASSIUM CHLORIDE
     Dosage: UNK UNK, SINGLE
     Route: 048
     Dates: start: 20230211, end: 20230211
  83. K-DUR [Concomitant]
     Active Substance: POTASSIUM CHLORIDE
     Dosage: UNK UNK, SINGLE
     Route: 048
     Dates: start: 20230405, end: 20230405
  84. SUBLIMAZE [Concomitant]
     Active Substance: FENTANYL CITRATE
     Indication: Pyrexia
     Dosage: 25 MICROGRAM
     Route: 042
     Dates: start: 20230214, end: 20230214
  85. SUBLIMAZE [Concomitant]
     Active Substance: FENTANYL CITRATE
     Indication: Bacillus bacteraemia
     Dosage: UNK, BID
     Route: 048
     Dates: start: 20230302, end: 20230306
  86. EPINEPHRINE\LIDOCAINE [Concomitant]
     Active Substance: EPINEPHRINE\LIDOCAINE
     Dosage: 3 MILLILITER
     Route: 058
     Dates: start: 20230214, end: 20230214
  87. CLEOCIN [Concomitant]
     Active Substance: CLINDAMYCIN PHOSPHATE
     Indication: Pyrexia
     Dosage: 900 MILLIGRAM, TID
     Route: 042
     Dates: start: 20230219, end: 20230220
  88. CLEOCIN [Concomitant]
     Active Substance: CLINDAMYCIN PHOSPHATE
     Indication: Bacillus bacteraemia
     Dosage: 450 MILLIGRAM, TID
     Route: 042
     Dates: start: 20230220, end: 20230220
  89. OMNIPAQUE [Concomitant]
     Active Substance: IOHEXOL
     Dosage: 50 MILLILITER, SINGLE
     Route: 048
     Dates: start: 20230220, end: 20230220
  90. OMNIPAQUE [Concomitant]
     Active Substance: IOHEXOL
     Dosage: 50 MILLILITER, SINGLE
     Route: 048
     Dates: start: 20230404, end: 20230404
  91. VANCOCIN [Concomitant]
     Active Substance: VANCOMYCIN HYDROCHLORIDE
     Dosage: 750 MILLIGRAM
     Route: 042
     Dates: start: 20230222, end: 20230222
  92. CUBICIN [Concomitant]
     Active Substance: DAPTOMYCIN
     Dosage: 500 MILLIGRAM
     Route: 042
     Dates: start: 20230222, end: 20230222
  93. CUBICIN [Concomitant]
     Active Substance: DAPTOMYCIN
     Dosage: 500 MILLIGRAM
     Route: 042
     Dates: start: 20230405, end: 20230405
  94. DOTAREM [Concomitant]
     Active Substance: GADOTERATE MEGLUMINE
     Dosage: 9.5 MILLILITER, SINGLE
     Route: 042
     Dates: start: 20230224, end: 20230224
  95. DOTAREM [Concomitant]
     Active Substance: GADOTERATE MEGLUMINE
     Dosage: 9 MILLILITER, SINGLE
     Route: 042
     Dates: start: 20230301, end: 20230301
  96. XYLOCAINE [Concomitant]
     Active Substance: LIDOCAINE HYDROCHLORIDE
     Dosage: UNK
     Route: 061
     Dates: start: 20230224, end: 20230224
  97. CETACAINE ANESTHETIC [Concomitant]
     Active Substance: BENZOCAINE\BUTAMBEN\TETRACAINE HYDROCHLORIDE
     Indication: Pyrexia
  98. CETACAINE ANESTHETIC [Concomitant]
     Active Substance: BENZOCAINE\BUTAMBEN\TETRACAINE HYDROCHLORIDE
     Indication: Bacillus bacteraemia
  99. ROMAZICON [Concomitant]
     Active Substance: FLUMAZENIL
     Dosage: 0.5 MILLIGRAM
     Route: 042
     Dates: start: 20230224, end: 20230224
  100. NARCAN [Concomitant]
     Active Substance: NALOXONE HYDROCHLORIDE
     Dosage: 0.4 MILLIGRAM
     Route: 042
     Dates: start: 20230224, end: 20230224
  101. CAFFEINE [Concomitant]
     Active Substance: CAFFEINE
     Indication: Pyrexia
     Dosage: 200 MILLIGRAM
     Route: 048
     Dates: start: 20230301, end: 20230301
  102. CAFFEINE [Concomitant]
     Active Substance: CAFFEINE
     Indication: Bacillus bacteraemia
  103. MEROPENEM [Concomitant]
     Active Substance: MEROPENEM
     Indication: Pyrexia
     Dosage: 1 GRAM
     Route: 058
     Dates: start: 20230306, end: 20230306
  104. MEROPENEM [Concomitant]
     Active Substance: MEROPENEM
     Indication: Bacillus bacteraemia
     Dosage: 0.5 GRAM
     Route: 042
     Dates: start: 20230306, end: 20230306
  105. DAPTOMYCIN [Concomitant]
     Active Substance: DAPTOMYCIN
     Indication: Pyrexia
     Dosage: 500 MILLIGRAM
     Route: 058
     Dates: start: 20230306, end: 20230306
  106. DAPTOMYCIN [Concomitant]
     Active Substance: DAPTOMYCIN
     Indication: Bacillus bacteraemia
     Dosage: 500 MILLIGRAM
     Route: 042
     Dates: start: 20230306, end: 20230412
  107. ALTEPLASE [Concomitant]
     Active Substance: ALTEPLASE
     Dosage: 2 MILLIGRAM
     Dates: start: 20230306, end: 20230306
  108. LIDOCAINE\PRILOCAINE HYDROCHLORIDE [Concomitant]
     Active Substance: LIDOCAINE\PRILOCAINE HYDROCHLORIDE
     Dosage: 30 GRAM
     Route: 061
     Dates: start: 20230314, end: 20230422
  109. ALLOPURINOL [Concomitant]
     Active Substance: ALLOPURINOL
     Dosage: 100 MILLIGRAM
     Route: 048
     Dates: start: 20230413, end: 20230422
  110. ALLOPURINOL [Concomitant]
     Active Substance: ALLOPURINOL
     Dosage: 50 MILLIGRAM
     Route: 048
     Dates: start: 20230414, end: 20230422
  111. BUPRENORPHINE [Concomitant]
     Active Substance: BUPRENORPHINE
     Dosage: UNK
     Route: 062
     Dates: start: 20230417, end: 20230422
  112. NALOXONE [Concomitant]
     Active Substance: NALOXONE
     Dosage: UNK
     Route: 055
     Dates: start: 20230412, end: 20230422
  113. FERROUS SULFATE [Concomitant]
     Active Substance: FERROUS SULFATE
     Indication: Abdominal pain
     Dosage: 324 MILLIGRAM, QD
     Route: 048
     Dates: start: 20230414, end: 20230422
  114. VITAMIN B12 [Concomitant]
     Active Substance: CYANOCOBALAMIN
     Dosage: 1000 MICROGRAM
     Route: 058
     Dates: start: 20230414, end: 20230422
  115. TIOTROPIUM [Concomitant]
     Active Substance: TIOTROPIUM
     Indication: Chronic obstructive pulmonary disease
     Dosage: UNK UNK, QD
     Route: 065
     Dates: start: 20230414, end: 20230422
  116. TIOTROPIUM [Concomitant]
     Active Substance: TIOTROPIUM
     Dosage: 324 MILLIGRAM, QD
     Route: 048
     Dates: start: 20230405, end: 20230412
  117. TIOTROPIUM [Concomitant]
     Active Substance: TIOTROPIUM
     Dosage: 18 MICROGRAM, QD
     Route: 055
  118. TIOTROPIUM [Concomitant]
     Active Substance: TIOTROPIUM
     Dosage: 2 DOSAGE FORM, QD
     Route: 055
  119. DEXTROSE [Concomitant]
     Active Substance: DEXTROSE\DEXTROSE MONOHYDRATE
     Indication: Abdominal pain
     Dosage: UNK
     Route: 048
     Dates: start: 20230414, end: 20230422
  120. MEROPENEM [Concomitant]
     Active Substance: MEROPENEM
     Dosage: 0.5 GRAM, BID
     Route: 042
     Dates: start: 20230404, end: 20230405
  121. LOMOTIL [Concomitant]
     Active Substance: ATROPINE SULFATE\DIPHENOXYLATE HYDROCHLORIDE
     Dosage: 1 DOSAGE FORM
     Route: 048
     Dates: start: 20230404, end: 20230412
  122. PEPCID [Concomitant]
     Active Substance: FAMOTIDINE
     Dosage: 20 MILLIGRAM, SINGLE
     Route: 042
     Dates: start: 20230407, end: 20230408
  123. MARINOL [Concomitant]
     Active Substance: DRONABINOL
     Dosage: 5 MILLIGRAM, QD
     Route: 048
     Dates: start: 20230408, end: 20230412
  124. ACETAMINOPHEN [Concomitant]
     Active Substance: ACETAMINOPHEN
     Indication: Analgesic therapy
     Dosage: 650 MILLIGRAM, Q6HR
     Route: 048
  125. Biotene Dry Mouth [Concomitant]
     Indication: Dry mouth
     Dosage: 1 DOSAGE FORM
     Route: 048
  126. FAMOTIDINE [Concomitant]
     Active Substance: FAMOTIDINE
     Indication: Gastrooesophageal reflux disease
     Dosage: 20 MILLIGRAM, SINGLE
     Route: 042
  127. GUAIFENESIN [Concomitant]
     Active Substance: GUAIFENESIN
     Indication: Cough
     Dosage: 400 MILLIGRAM, Q6HR
     Route: 048
  128. GUAIFENESIN [Concomitant]
     Active Substance: GUAIFENESIN
     Indication: Nasal congestion
  129. IOHEXOL [Concomitant]
     Active Substance: IOHEXOL
     Dosage: 50 MILLILITER, SINGLE
     Route: 048
  130. IOHEXOL [Concomitant]
     Active Substance: IOHEXOL
     Dosage: UNK UNK, SINGLE
     Route: 048
  131. ALBUTEROL\IPRATROPIUM [Concomitant]
     Active Substance: ALBUTEROL\IPRATROPIUM
     Indication: Chronic obstructive pulmonary disease
     Dosage: 3 MILLILITER, Q4HR
     Route: 050
  132. ALBUTEROL\IPRATROPIUM [Concomitant]
     Active Substance: ALBUTEROL\IPRATROPIUM
     Dosage: 3 MILLILITER, Q6HR
     Route: 050
  133. EPINEPHRINE\LIDOCAINE [Concomitant]
     Active Substance: EPINEPHRINE\LIDOCAINE
     Indication: Local anaesthesia
     Dosage: 7 MILLILITER, SINGLE
     Route: 050
  134. EPINEPHRINE\LIDOCAINE [Concomitant]
     Active Substance: EPINEPHRINE\LIDOCAINE
     Dosage: 6 MILLILITER, SINGLE
     Route: 050
  135. EPINEPHRINE\LIDOCAINE [Concomitant]
     Active Substance: EPINEPHRINE\LIDOCAINE
     Dosage: 20 MILLILITER, SINGLE
     Route: 050
  136. MAGNESIUM SULFATE [Concomitant]
     Active Substance: MAGNESIUM SULFATE\MAGNESIUM SULFATE HEPTAHYDRATE
     Indication: Hypomagnesaemia
     Dosage: 4 GRAM, 3/WEEK
     Route: 042
  137. METHIMAZOLE [Concomitant]
     Active Substance: METHIMAZOLE
     Indication: Hyperthyroidism
     Dosage: 10 MILLIGRAM, QD
     Route: 048
  138. POLYETHYLENE GLYCOL [Concomitant]
     Active Substance: POLYETHYLENE GLYCOL
     Indication: Constipation
     Dosage: 17 GRAM, SINGLE
     Route: 048
  139. THIAMINE [Concomitant]
     Active Substance: THIAMINE
     Indication: Vitamin B1 deficiency
     Dosage: 100 MILLIGRAM, QD
     Route: 042

REACTIONS (5)
  - Bacteraemia [Recovered/Resolved]
  - Small intestinal obstruction [Not Recovered/Not Resolved]
  - Device failure [Recovered/Resolved]
  - Hypotension [Recovered/Resolved]
  - Hypoglycaemia [Recovered/Resolved]

NARRATIVE: CASE EVENT DATE: 20230318
